FAERS Safety Report 8423516-X (Version None)
Quarter: 2012Q2

REPORT INFORMATION
  Report Type: 
  Country: None (occurrence: None)
  Receive Date: 20120608
  Receipt Date: 20120529
  Transmission Date: 20120825
  Serious: No
  Sender: FDA-Public Use
  Company Number: US-ASTRAZENECA-2012SE31134

PATIENT
  Age: 75 Year
  Sex: Female

DRUGS (1)
  1. CRESTOR [Suspect]
     Route: 048

REACTIONS (11)
  - DIABETES MELLITUS [None]
  - MYALGIA [None]
  - HEADACHE [None]
  - NAUSEA [None]
  - FATIGUE [None]
  - ADVERSE EVENT [None]
  - VITAMIN D DECREASED [None]
  - BURNING SENSATION [None]
  - ASTHENIA [None]
  - PAIN [None]
  - ARTHRALGIA [None]
